FAERS Safety Report 4443280-9 (Version None)
Quarter: 2004Q3

REPORT INFORMATION
  Report Type: 
  Country: None (occurrence: None)
  Receive Date: 20040907
  Receipt Date: 20040907
  Transmission Date: 20050211
  Serious: Yes (Hospitalization)
  Sender: FDA-Public Use
  Company Number: None

PATIENT
  Age: 70 Year
  Sex: Female
  Weight: 78.9259 kg

DRUGS (1)
  1. ZOCOR [Suspect]
     Dosage: 80 MG   DAILY   ORAL
     Route: 048

REACTIONS (2)
  - LIVER DISORDER [None]
  - RHABDOMYOLYSIS [None]
